FAERS Safety Report 10453471 (Version 2)
Quarter: 2014Q4

REPORT INFORMATION
  Report Type: Report from Study
  Country: IT (occurrence: IT)
  Receive Date: 20140915
  Receipt Date: 20141009
  Transmission Date: 20150528
  Serious: Yes (Hospitalization, Other)
  Sender: FDA-Public Use
  Company Number: PHHY2014IT115618

PATIENT
  Age: 62 Year
  Sex: Male
  Weight: 78 kg

DRUGS (3)
  1. AMN107 [Suspect]
     Active Substance: NILOTINIB
     Indication: CHRONIC MYELOID LEUKAEMIA
     Dosage: 300 MG, BID
     Route: 048
     Dates: start: 20140221, end: 20140704
  2. LANSOPRAZOLE. [Concomitant]
     Active Substance: LANSOPRAZOLE
     Indication: GASTRIC DISORDER
     Dosage: 30 MG, QD
     Route: 048
  3. ALLOPURINOL. [Concomitant]
     Active Substance: ALLOPURINOL
     Indication: HYPERURICAEMIA
     Dosage: 300 MG, QD
     Route: 048

REACTIONS (3)
  - Acute coronary syndrome [Recovered/Resolved]
  - Vasoconstriction [Unknown]
  - Chest pain [Unknown]

NARRATIVE: CASE EVENT DATE: 20140615
